FAERS Safety Report 8489799-5 (Version None)
Quarter: 2012Q3

REPORT INFORMATION
  Report Type: 
  Country: None (occurrence: None)
  Receive Date: 20120705
  Receipt Date: 20120626
  Transmission Date: 20120928
  Serious: Yes (Hospitalization, Other)
  Sender: FDA-Public Use
  Company Number: CA-ELI_LILLY_AND_COMPANY-CA201203001567

PATIENT
  Sex: Male

DRUGS (9)
  1. GEMZAR [Suspect]
     Indication: NON-SMALL CELL LUNG CANCER METASTATIC
     Dosage: 1750 MG, UNK
     Dates: start: 20120119, end: 20120306
  2. ATORVASTATIN [Concomitant]
  3. DOCUSATE SODIUM [Concomitant]
  4. ADVAIR DISKUS 100/50 [Concomitant]
  5. FLOMAX [Concomitant]
  6. CARBOPLATIN [Concomitant]
     Indication: SMALL CELL LUNG CANCER METASTATIC
  7. LORAZEPAM [Concomitant]
  8. SENOKOT [Concomitant]
  9. TYLENOL W/ CODEINE NO. 3 [Concomitant]

REACTIONS (4)
  - ATRIAL FLUTTER [None]
  - LEFT VENTRICULAR DYSFUNCTION [None]
  - TACHYCARDIA [None]
  - HYPOTENSION [None]
